FAERS Safety Report 17157112 (Version 3)
Quarter: 2020Q4

REPORT INFORMATION
  Report Type: Spontaneous
  Country: US (occurrence: US)
  Receive Date: 20191216
  Receipt Date: 20201202
  Transmission Date: 20210113
  Serious: Yes (Other)
  Sender: FDA-Public Use
  Company Number: US-SA-2019SA346365

PATIENT

DRUGS (1)
  1. DUPIXENT [Suspect]
     Active Substance: DUPILUMAB
     Indication: ASTHMA
     Dosage: 300 MG, QOW
     Route: 058
     Dates: start: 20191105

REACTIONS (8)
  - Weight increased [Unknown]
  - Adverse drug reaction [Unknown]
  - Burning sensation [Unknown]
  - Paraesthesia [Unknown]
  - Trigger finger [Unknown]
  - Pruritus [Unknown]
  - Pneumonia [Unknown]
  - Urticaria [Unknown]

NARRATIVE: CASE EVENT DATE: 2019
